FAERS Safety Report 16174092 (Version 3)
Quarter: 2025Q1

REPORT INFORMATION
  Report Type: Spontaneous
  Country: US (occurrence: US)
  Receive Date: 20190409
  Receipt Date: 20250320
  Transmission Date: 20250408
  Serious: Yes (Hospitalization, Other)
  Sender: BRISTOL-MYERS SQUIBB COMPANY
  Company Number: US-BRISTOL-MYERS SQUIBB COMPANY-BMS-2019-035042

PATIENT
  Age: 76 Year
  Sex: Male
  Weight: 104 kg

DRUGS (16)
  1. APIXABAN [Suspect]
     Active Substance: APIXABAN
     Indication: Cerebrovascular accident prophylaxis
     Dosage: 5 MILLIGRAM, BID
     Route: 048
     Dates: start: 20190115, end: 20190311
  2. APIXABAN [Suspect]
     Active Substance: APIXABAN
     Dosage: 5 MILLIGRAM, BID
     Route: 048
     Dates: start: 20190313
  3. ASPIRIN [Suspect]
     Active Substance: ASPIRIN
     Indication: Atrial flutter
     Route: 048
     Dates: start: 20090225, end: 20190311
  4. TAFAMIDIS MEGLUMINE [Suspect]
     Active Substance: TAFAMIDIS MEGLUMINE
     Indication: Cardiomyopathy
     Route: 048
     Dates: start: 20190116, end: 20190310
  5. CLARITIN [Suspect]
     Active Substance: LORATADINE
     Indication: Rhinitis allergic
     Dates: start: 201805
  6. TAFAMIDIS [Concomitant]
     Active Substance: TAFAMIDIS
     Indication: Cardiomyopathy
     Route: 048
     Dates: start: 20190116, end: 20190310
  7. TAFAMIDIS [Concomitant]
     Active Substance: TAFAMIDIS
     Route: 048
     Dates: start: 20190314
  8. MOMETASONE FUROATE [Concomitant]
     Active Substance: MOMETASONE FUROATE
     Indication: Rhinitis allergic
     Dates: start: 20151212
  9. LANTUS [Concomitant]
     Active Substance: INSULIN GLARGINE
     Indication: Diabetes mellitus
     Dates: start: 20161212
  10. HUMALOG [Concomitant]
     Active Substance: INSULIN LISPRO
     Indication: Diabetes mellitus
     Dates: start: 20161128
  11. K DUR [Concomitant]
     Indication: Product used for unknown indication
     Dates: start: 201806
  12. HYDROCHLOROTHIAZIDE\SPIRONOLACTONE [Concomitant]
     Active Substance: HYDROCHLOROTHIAZIDE\SPIRONOLACTONE
     Indication: Cardiac failure chronic
     Dates: start: 201806
  13. LIPITOR [Concomitant]
     Active Substance: ATORVASTATIN CALCIUM
     Indication: Coronary artery disease
     Dates: start: 201612
  14. TESTOSTERONE CYPIONATE [Concomitant]
     Active Substance: TESTOSTERONE CYPIONATE
     Indication: Hypogonadism
     Dates: start: 201606
  15. DEMADEX [Concomitant]
     Active Substance: TORSEMIDE
     Indication: Oedema peripheral
     Dates: start: 201806
  16. TRIAMCINOLON COMPO [Concomitant]
     Indication: Pruritus
     Dates: start: 20181226

REACTIONS (2)
  - Gastrointestinal haemorrhage [Unknown]
  - Failure to suspend medication [Unknown]

NARRATIVE: CASE EVENT DATE: 20190308
